FAERS Safety Report 13072127 (Version 4)
Quarter: 2017Q1

REPORT INFORMATION
  Report Type: Spontaneous
  Country: US (occurrence: US)
  Receive Date: 20161229
  Receipt Date: 20170227
  Transmission Date: 20170428
  Serious: No
  Sender: FDA-Public Use
  Company Number: US-LUNDBECK-DKLU2024045

PATIENT
  Age: 84 Year
  Sex: Male

DRUGS (2)
  1. NORTHERA [Suspect]
     Active Substance: DROXIDOPA
     Route: 065
     Dates: start: 20170102
  2. NORTHERA [Suspect]
     Active Substance: DROXIDOPA
     Indication: PRODUCT USED FOR UNKNOWN INDICATION
     Dosage: SCHEDULE C AND TITRATING
     Route: 065
     Dates: start: 20161209

REACTIONS (8)
  - Hyperhidrosis [Unknown]
  - Asthenia [Unknown]
  - Drug dose omission [Unknown]
  - Malaise [Unknown]
  - Blood pressure increased [Unknown]
  - Somnolence [Unknown]
  - Peripheral coldness [Unknown]
  - Hypotension [Unknown]

NARRATIVE: CASE EVENT DATE: 201612
